FAERS Safety Report 17692744 (Version 1)
Quarter: 2020Q2

REPORT INFORMATION
  Report Type: Spontaneous
  Country: US (occurrence: US)
  Receive Date: 20200422
  Receipt Date: 20200422
  Transmission Date: 20200714
  Serious: Yes (Other)
  Sender: FDA-Public Use
  Company Number: None

PATIENT

DRUGS (1)
  1. TAXOL [Suspect]
     Active Substance: PACLITAXEL

REACTIONS (5)
  - Infusion related reaction [None]
  - Feeling hot [None]
  - Anxiety [None]
  - Agitation [None]
  - Cardio-respiratory arrest [None]

NARRATIVE: CASE EVENT DATE: 20200406
